FAERS Safety Report 5573524-1 (Version None)
Quarter: 2007Q4

REPORT INFORMATION
  Report Type: 
  Country: None (occurrence: None)
  Receive Date: 20071220
  Receipt Date: 20071220
  Transmission Date: 20080405
  Serious: Yes (Other)
  Sender: FDA-Public Use
  Company Number: None

PATIENT
  Age: 48 Year
  Sex: Male
  Weight: 99.7913 kg

DRUGS (1)
  1. LEVAQUIN [Suspect]
     Indication: BENIGN PROSTATIC HYPERPLASIA
     Dosage: 500MG  ONCE DAILY  PO
     Route: 048
     Dates: start: 20070605, end: 20070609

REACTIONS (1)
  - LIVER DISORDER [None]
